FAERS Safety Report 7797687-2 (Version None)
Quarter: 2011Q4

REPORT INFORMATION
  Report Type: 
  Country: None (occurrence: None)
  Receive Date: 20111005
  Receipt Date: 20110924
  Transmission Date: 20120403
  Serious: Yes (Other)
  Sender: FDA-Public Use
  Company Number: PHHY2011CH85093

PATIENT
  Sex: Female

DRUGS (1)
  1. GILENYA [Suspect]
     Dosage: UNK UKN, UNK
     Dates: start: 20110303

REACTIONS (4)
  - RESPIRATORY DISORDER [None]
  - GASTROINTESTINAL DISORDER [None]
  - LYMPHOPENIA [None]
  - NEURALGIA [None]
